FAERS Safety Report 20903701 (Version 1)
Quarter: 2022Q2

REPORT INFORMATION
  Report Type: Spontaneous
  Country: US (occurrence: US)
  Receive Date: 20220602
  Receipt Date: 20220602
  Transmission Date: 20220721
  Serious: Yes (Other)
  Sender: FDA-Public Use
  Company Number: US-SUN PHARMACEUTICAL INDUSTRIES LTD-2022R1-338891

PATIENT
  Age: 41 Year
  Sex: Female

DRUGS (2)
  1. CALCITRIOL [Suspect]
     Active Substance: CALCITRIOL
     Indication: Hypophosphataemia
     Dosage: 0.25 MCG, DAILY
     Route: 048
  2. PHOSPHORUS [Suspect]
     Active Substance: PHOSPHORUS
     Indication: Hypophosphataemia
     Dosage: 250 MILLIGRAM, QID
     Route: 048

REACTIONS (1)
  - Blood phosphorus decreased [Recovered/Resolved]
